FAERS Safety Report 15745243 (Version 3)
Quarter: 2019Q2

REPORT INFORMATION
  Report Type: Report from Study
  Country: PL (occurrence: PL)
  Receive Date: 20181220
  Receipt Date: 20190516
  Transmission Date: 20190711
  Serious: Yes (Hospitalization)
  Sender: FDA-Public Use
  Company Number: PL-ROCHE-2210168

PATIENT
  Age: 57 Year
  Sex: Male
  Weight: 85 kg

DRUGS (65)
  1. RO6874281 (FAP IL2V MAB) [Suspect]
     Active Substance: RO-6874281
     Indication: NON-SMALL CELL LUNG CANCER
     Route: 042
     Dates: start: 20180528
  2. KETONAL [KETOPROFEN] [Concomitant]
     Indication: PREMEDICATION
     Route: 065
     Dates: start: 20180604, end: 20180604
  3. KETONAL [KETOPROFEN] [Concomitant]
     Route: 065
     Dates: start: 20180528, end: 20180528
  4. ALNETA [Concomitant]
     Route: 065
     Dates: start: 20180612, end: 20181201
  5. ONDANSETRON [Concomitant]
     Active Substance: ONDANSETRON
     Route: 065
     Dates: start: 20180618, end: 20180618
  6. ONDANSETRON [Concomitant]
     Active Substance: ONDANSETRON
     Route: 065
     Dates: start: 20180723, end: 20180723
  7. RANIGAST [Concomitant]
     Route: 065
     Dates: start: 20180611, end: 20180611
  8. PARACETAMOL [Concomitant]
     Active Substance: ACETAMINOPHEN
     Indication: PREMEDICATION
     Route: 065
     Dates: start: 20180528, end: 20180528
  9. ATEZOLIZUMAB. [Suspect]
     Active Substance: ATEZOLIZUMAB
     Indication: NON-SMALL CELL LUNG CANCER
     Route: 041
     Dates: start: 20180528
  10. NEOPARIN [Concomitant]
     Indication: ANTICOAGULANT THERAPY
     Route: 065
     Dates: start: 20180531, end: 20181201
  11. KETONAL [KETOPROFEN] [Concomitant]
     Route: 065
     Dates: start: 20180611, end: 20180611
  12. KETONAL [KETOPROFEN] [Concomitant]
     Route: 065
     Dates: start: 20180723, end: 20180723
  13. KETONAL [KETOPROFEN] [Concomitant]
     Route: 065
     Dates: start: 20181001, end: 20181001
  14. DIURESIN [Concomitant]
     Active Substance: INDAPAMIDE
     Route: 065
     Dates: start: 20180601, end: 20181201
  15. ONDANSETRON [Concomitant]
     Active Substance: ONDANSETRON
     Route: 065
     Dates: start: 20180709, end: 20180709
  16. RANIGAST [Concomitant]
     Route: 065
     Dates: start: 20180625, end: 20180625
  17. RANIGAST [Concomitant]
     Route: 065
     Dates: start: 20180903, end: 20180903
  18. PARACETAMOL [Concomitant]
     Active Substance: ACETAMINOPHEN
     Route: 065
     Dates: start: 20181001, end: 20181001
  19. KETONAL [KETOPROFEN] [Concomitant]
     Route: 065
     Dates: start: 20180806, end: 20180806
  20. RANIGAST [Concomitant]
     Route: 065
     Dates: start: 20180806, end: 20180806
  21. RANIGAST [Concomitant]
     Route: 065
     Dates: start: 20181015, end: 20181015
  22. KETONAL [KETOPROFEN] [Concomitant]
     Route: 065
     Dates: start: 20180709, end: 20180709
  23. ALNETA [Concomitant]
     Indication: HYPERTENSION
     Route: 065
     Dates: start: 2014, end: 20180527
  24. ONDANSETRON [Concomitant]
     Active Substance: ONDANSETRON
     Route: 065
     Dates: start: 20180611, end: 20180611
  25. RANIGAST [Concomitant]
     Route: 065
     Dates: start: 20181001, end: 20181001
  26. PARACETAMOL [Concomitant]
     Active Substance: ACETAMINOPHEN
     Route: 065
     Dates: start: 20180618, end: 20180618
  27. PARACETAMOL [Concomitant]
     Active Substance: ACETAMINOPHEN
     Route: 065
     Dates: start: 20180820, end: 20180820
  28. PARACETAMOL [Concomitant]
     Active Substance: ACETAMINOPHEN
     Route: 065
     Dates: start: 20180723, end: 20180723
  29. PARACETAMOL [Concomitant]
     Active Substance: ACETAMINOPHEN
     Route: 065
     Dates: start: 20181015, end: 20181015
  30. ALNETA [Concomitant]
     Route: 065
     Dates: start: 20180601, end: 20180609
  31. NEDAL [Concomitant]
     Active Substance: NEBIVOLOL HYDROCHLORIDE
     Indication: HYPERTENSION
     Route: 065
     Dates: start: 2014, end: 20180527
  32. NEDAL [Concomitant]
     Active Substance: NEBIVOLOL HYDROCHLORIDE
     Route: 065
     Dates: start: 20180601, end: 20180609
  33. DIURESIN [Concomitant]
     Active Substance: INDAPAMIDE
     Indication: HYPERTENSION
     Route: 065
     Dates: start: 2014, end: 20180527
  34. ONDANSETRON [Concomitant]
     Active Substance: ONDANSETRON
     Route: 065
     Dates: start: 20180625, end: 20180625
  35. ONDANSETRON [Concomitant]
     Active Substance: ONDANSETRON
     Route: 065
     Dates: start: 20180820, end: 20180820
  36. ONDANSETRON [Concomitant]
     Active Substance: ONDANSETRON
     Route: 065
     Dates: start: 20180917, end: 20180917
  37. PARACETAMOL [Concomitant]
     Active Substance: ACETAMINOPHEN
     Route: 065
     Dates: start: 20180604, end: 20180607
  38. PARACETAMOL [Concomitant]
     Active Substance: ACETAMINOPHEN
     Route: 065
     Dates: start: 20180611, end: 20180611
  39. PARACETAMOL [Concomitant]
     Active Substance: ACETAMINOPHEN
     Route: 065
     Dates: start: 20180903, end: 20180903
  40. PARACETAMOL [Concomitant]
     Active Substance: ACETAMINOPHEN
     Route: 065
     Dates: start: 20180917, end: 20180917
  41. RO6874281 (FAP IL2V MAB) [Suspect]
     Active Substance: RO-6874281
     Dosage: DATE OF MOST RECENT DOSE PRIOR TO SERIOUS ADVERSE EVENT (SAE): AT 12:54
     Route: 042
     Dates: start: 20181015
  42. KETONAL [KETOPROFEN] [Concomitant]
     Route: 065
     Dates: start: 20180618, end: 20180618
  43. KETONAL [KETOPROFEN] [Concomitant]
     Route: 065
     Dates: start: 20180903, end: 20180903
  44. KETONAL [KETOPROFEN] [Concomitant]
     Route: 065
     Dates: start: 20181015, end: 20181015
  45. ONDANSETRON [Concomitant]
     Active Substance: ONDANSETRON
     Route: 065
     Dates: start: 20180806, end: 20180806
  46. RANIGAST [Concomitant]
     Route: 065
     Dates: start: 20180709, end: 20180709
  47. RANIGAST [Concomitant]
     Route: 065
     Dates: start: 20180820, end: 20180820
  48. PARACETAMOL [Concomitant]
     Active Substance: ACETAMINOPHEN
     Route: 065
     Dates: start: 20180806, end: 20180806
  49. ONDANSETRON [Concomitant]
     Active Substance: ONDANSETRON
     Indication: PREMEDICATION
     Route: 065
     Dates: start: 20180528, end: 20180528
  50. ONDANSETRON [Concomitant]
     Active Substance: ONDANSETRON
     Route: 065
     Dates: start: 20180903, end: 20180903
  51. ONDANSETRON [Concomitant]
     Active Substance: ONDANSETRON
     Route: 065
     Dates: start: 20181001, end: 20181001
  52. RANIGAST [Concomitant]
     Indication: PREMEDICATION
     Route: 065
     Dates: start: 20180528, end: 20180528
  53. RANIGAST [Concomitant]
     Route: 065
     Dates: start: 20180917, end: 20180917
  54. ATEZOLIZUMAB. [Suspect]
     Active Substance: ATEZOLIZUMAB
     Dosage: DATE OF MOST RECENT DOSE PRIOR TO SAE AT 11:14
     Route: 042
     Dates: start: 20181015
  55. MILURIT [Concomitant]
     Active Substance: ALLOPURINOL
     Indication: PROPHYLAXIS
     Route: 065
     Dates: start: 20180530, end: 20181201
  56. KETONAL [KETOPROFEN] [Concomitant]
     Route: 065
     Dates: start: 20180820, end: 20180820
  57. KETONAL [KETOPROFEN] [Concomitant]
     Route: 065
     Dates: start: 20180917, end: 20180917
  58. NEDAL [Concomitant]
     Active Substance: NEBIVOLOL HYDROCHLORIDE
     Route: 065
     Dates: start: 20180612, end: 20181201
  59. ONDANSETRON [Concomitant]
     Active Substance: ONDANSETRON
     Route: 065
     Dates: start: 20181015, end: 20181015
  60. RANIGAST [Concomitant]
     Route: 065
     Dates: start: 20180604, end: 20180604
  61. RANIGAST [Concomitant]
     Route: 065
     Dates: start: 20180618, end: 20180618
  62. RANIGAST [Concomitant]
     Route: 065
     Dates: start: 20180723, end: 20180723
  63. PARACETAMOL [Concomitant]
     Active Substance: ACETAMINOPHEN
     Route: 065
     Dates: start: 20180618, end: 20180618
  64. PARACETAMOL [Concomitant]
     Active Substance: ACETAMINOPHEN
     Route: 065
     Dates: start: 20180709, end: 20180709
  65. ACETAMINOPHEN. [Concomitant]
     Active Substance: ACETAMINOPHEN
     Indication: PREMEDICATION
     Route: 065
     Dates: start: 20180806, end: 20180806

REACTIONS (1)
  - Tracheo-oesophageal fistula [Recovered/Resolved]

NARRATIVE: CASE EVENT DATE: 20181030
